FAERS Safety Report 4557166-2 (Version None)
Quarter: 2005Q1

REPORT INFORMATION
  Report Type: 
  Country: None (occurrence: None)
  Receive Date: 20050118
  Receipt Date: 20050104
  Transmission Date: 20050727
  Serious: Yes (Hospitalization)
  Sender: FDA-Public Use
  Company Number: 8008437

PATIENT
  Sex: Male
  Weight: 1.68 kg

DRUGS (3)
  1. KEPPRA [Suspect]
     Indication: EPILEPSY
     Dosage: TRP
     Dates: start: 20030701
  2. EPITOMAX [Suspect]
     Dosage: TRP
  3. GARDENAL [Suspect]
     Dosage: TRP

REACTIONS (4)
  - CAESAREAN SECTION [None]
  - DRUG EXPOSURE DURING PREGNANCY [None]
  - HYPOTONIA NEONATAL [None]
  - PREMATURE BABY [None]
